FAERS Safety Report 17854010 (Version 4)
Quarter: 2022Q2

REPORT INFORMATION
  Report Type: Spontaneous
  Country: BE (occurrence: BE)
  Receive Date: 20200603
  Receipt Date: 20220628
  Transmission Date: 20220721
  Serious: Yes (Hospitalization)
  Sender: FDA-Public Use
  Company Number: BE-GSKCCFEMEA-CASE-00949536_AE-29143

PATIENT

DRUGS (1)
  1. CEFUROXIME [Suspect]
     Active Substance: CEFUROXIME
     Indication: Product used for unknown indication
     Dosage: 300 MG, QD
     Route: 048

REACTIONS (5)
  - Accidental overdose [Unknown]
  - Feeling abnormal [Unknown]
  - Product administration error [Unknown]
  - Product complaint [Unknown]
  - Malaise [Unknown]

NARRATIVE: CASE EVENT DATE: 20200524
